FAERS Safety Report 9713449 (Version 4)
Quarter: 2014Q3

REPORT INFORMATION
  Report Type: Spontaneous
  Country: US (occurrence: US)
  Receive Date: 20131126
  Receipt Date: 20140804
  Transmission Date: 20150326
  Serious: Yes (Hospitalization)
  Sender: FDA-Public Use
  Company Number: US-ELI_LILLY_AND_COMPANY-US201209006114

PATIENT
  Age: 56 Year
  Sex: Female

DRUGS (8)
  1. FORTEO [Suspect]
     Active Substance: TERIPARATIDE
     Indication: BONE DENSITY DECREASED
     Dosage: 20 UG, QD
     Route: 065
  2. EVISTA [Suspect]
     Active Substance: RALOXIFENE HYDROCHLORIDE
     Indication: OSTEOPOROSIS
     Dosage: 60 MG, QD
     Route: 065
     Dates: start: 2009
  3. EVISTA [Suspect]
     Active Substance: RALOXIFENE HYDROCHLORIDE
     Dosage: 60 MG, QD
     Route: 065
  4. FORTEO [Suspect]
     Active Substance: TERIPARATIDE
     Dosage: 20 UG, QD
     Route: 065
  5. XARELTO [Suspect]
     Active Substance: RIVAROXABAN
     Indication: THROMBOSIS
     Dosage: UNK
     Route: 065
  6. FORTEO [Suspect]
     Active Substance: TERIPARATIDE
     Indication: OSTEOPOROSIS
     Dosage: 20 UG, QD
     Route: 065
     Dates: start: 20120908, end: 201209
  7. FORTEO [Suspect]
     Active Substance: TERIPARATIDE
     Dosage: 20 UG, QD
     Route: 065
     Dates: end: 20130519
  8. CALTRATE [Concomitant]
     Active Substance: CALCIUM CARBONATE
     Indication: PRODUCT USED FOR UNKNOWN INDICATION
     Route: 065

REACTIONS (21)
  - Breast disorder [Recovered/Resolved]
  - Road traffic accident [Recovered/Resolved]
  - Nausea [Recovered/Resolved]
  - Thrombosis [Unknown]
  - Sluggishness [Recovered/Resolved]
  - Restless legs syndrome [Not Recovered/Not Resolved]
  - Muscle spasms [Recovered/Resolved]
  - Medication error [Recovered/Resolved]
  - Asthenia [Recovered/Resolved]
  - Blood calcium increased [Recovered/Resolved]
  - Eating disorder [Recovered/Resolved]
  - Dizziness [Recovered/Resolved]
  - Headache [Recovered/Resolved]
  - Palpitations [Recovered/Resolved]
  - Apathy [Recovered/Resolved]
  - Mood altered [Recovered/Resolved]
  - Bone density decreased [Unknown]
  - Pain in extremity [Not Recovered/Not Resolved]
  - Contusion [Unknown]
  - Injection site bruising [Unknown]
  - Hypoaesthesia [Unknown]

NARRATIVE: CASE EVENT DATE: 20120912
